FAERS Safety Report 7738752-5 (Version None)
Quarter: 2011Q3

REPORT INFORMATION
  Report Type: 
  Country: None (occurrence: None)
  Receive Date: 20110908
  Receipt Date: 20110825
  Transmission Date: 20111222
  Serious: Yes (Hospitalization)
  Sender: FDA-Public Use
  Company Number: FR-GENENTECH-323879

PATIENT
  Sex: Male
  Weight: 25.5 kg

DRUGS (3)
  1. XOLAIR [Suspect]
     Indication: ASTHMA
     Dosage: UNK
     Route: 058
     Dates: start: 20110712
  2. XOLAIR [Suspect]
     Dosage: 150 MG, UNK
     Route: 058
  3. XOLAIR [Suspect]
     Dosage: 150 MG, UNK
     Route: 058

REACTIONS (5)
  - FEELING HOT [None]
  - TINNITUS [None]
  - HEADACHE [None]
  - MALAISE [None]
  - VISUAL IMPAIRMENT [None]
